FAERS Safety Report 23225724 (Version 1)
Quarter: 2023Q4

REPORT INFORMATION
  Report Type: Spontaneous
  Country: US (occurrence: US)
  Receive Date: 20231124
  Receipt Date: 20231124
  Transmission Date: 20240109
  Serious: No
  Sender: FDA-Public Use
  Company Number: US-SA-SAC20231121000179

PATIENT
  Age: 26 Year
  Sex: Male

DRUGS (1)
  1. DUPIXENT [Suspect]
     Active Substance: DUPILUMAB
     Indication: Illness
     Dosage: DOSE - 300MG FREQUENCY-: EVERY OTHER WEEK
     Route: 058
     Dates: start: 202210

REACTIONS (1)
  - Inappropriate schedule of product administration [Unknown]
